FAERS Safety Report 8917171 (Version 3)
Quarter: 2012Q4

REPORT INFORMATION
  Report Type: Report from Study
  Country: JP (occurrence: JP)
  Receive Date: 20121120
  Receipt Date: 20121214
  Transmission Date: 20130627
  Serious: Yes (Other)
  Sender: FDA-Public Use
  Company Number: JP-UCBSA-070113

PATIENT
  Age: 20 Year
  Sex: Female

DRUGS (5)
  1. E KEPPRA [Suspect]
     Indication: PARTIAL SEIZURES WITH SECONDARY GENERALISATION
     Route: 048
     Dates: start: 20120628, end: 20120831
  2. E KEPPRA [Suspect]
     Indication: COMPLEX PARTIAL SEIZURES
     Route: 048
     Dates: start: 20120628, end: 20120831
  3. LAMICTAL [Suspect]
     Indication: COMPLEX PARTIAL SEIZURES
     Dosage: DAILY DOSE: 500 MG
     Route: 048
     Dates: start: 20120726, end: 20120830
  4. LAMICTAL [Suspect]
     Indication: PARTIAL SEIZURES WITH SECONDARY GENERALISATION
     Dosage: DAILY DOSE: 500 MG
     Route: 048
     Dates: start: 20120726, end: 20120830
  5. DEPAKENE [Concomitant]
     Indication: CONVULSION
     Dosage: UNKNOWN DOSE
     Dates: start: 2012, end: 2012

REACTIONS (3)
  - Selective abortion [Recovered/Resolved]
  - Epilepsy [Recovered/Resolved]
  - Pregnancy [Recovered/Resolved]
